FAERS Safety Report 10233869 (Version 2)
Quarter: 2014Q3

REPORT INFORMATION
  Report Type: Spontaneous
  Country: US (occurrence: US)
  Receive Date: 20140612
  Receipt Date: 20140728
  Transmission Date: 20150326
  Serious: Yes (Other)
  Sender: FDA-Public Use
  Company Number: US-BAYER-2014-082436

PATIENT
  Age: 60 Year
  Sex: Female
  Weight: 64.4 kg

DRUGS (2)
  1. GADAVIST [Suspect]
     Active Substance: GADOBUTROL
     Indication: NUCLEAR MAGNETIC RESONANCE IMAGING
     Dosage: 7 ML, ONCE
     Route: 042
     Dates: start: 20140602, end: 20140602
  2. GADAVIST [Suspect]
     Active Substance: GADOBUTROL
     Indication: HEADACHE

REACTIONS (4)
  - Anaphylactic reaction [None]
  - Hypoaesthesia oral [None]
  - Paraesthesia oral [None]
  - Pharyngeal hypoaesthesia [None]

NARRATIVE: CASE EVENT DATE: 20140602
